FAERS Safety Report 21732152 (Version 1)
Quarter: 2022Q4

REPORT INFORMATION
  Report Type: Spontaneous
  Country: HK (occurrence: HK)
  Receive Date: 20221215
  Receipt Date: 20221215
  Transmission Date: 20230113
  Serious: Yes (Hospitalization, Other)
  Sender: FDA-Public Use
  Company Number: HK-BoehringerIngelheim-2022-BI-207240

PATIENT
  Age: 83 Year
  Sex: Male

DRUGS (1)
  1. DABIGATRAN [Suspect]
     Active Substance: DABIGATRAN
     Indication: Atrial fibrillation

REACTIONS (6)
  - Dizziness [Unknown]
  - Dysarthria [Unknown]
  - Vomiting [Unknown]
  - Cerebral haemorrhage [Unknown]
  - Dysarthria [Unknown]
  - Ataxia [Unknown]
